FAERS Safety Report 4872382-8 (Version None)
Quarter: 2006Q1

REPORT INFORMATION
  Report Type: 
  Country: None (occurrence: None)
  Receive Date: 20060104
  Receipt Date: 20051227
  Transmission Date: 20060701
  Serious: Yes (Other)
  Sender: FDA-Public Use
  Company Number: US-MERCK-0512USA03833

PATIENT
  Sex: Male

DRUGS (2)
  1. VIOXX [Suspect]
     Route: 048
     Dates: start: 20020401, end: 20030901
  2. VIOXX [Suspect]
     Route: 065
     Dates: start: 20040301, end: 20040401

REACTIONS (1)
  - MYOCARDIAL INFARCTION [None]
